FAERS Safety Report 11141212 (Version 1)
Quarter: 2015Q2

REPORT INFORMATION
  Report Type: Report from Study
  Country: BR (occurrence: BR)
  Receive Date: 20150527
  Receipt Date: 20150527
  Transmission Date: 20150821
  Serious: Yes (Life-Threatening)
  Sender: FDA-Public Use
  Company Number: PHHY2015BR062144

PATIENT
  Age: 57 Year
  Sex: Female
  Weight: 70 kg

DRUGS (2)
  1. ONBREZ BREEZHALER [Suspect]
     Active Substance: INDACATEROL
     Indication: PNEUMONIA
     Dosage: 1 DF (150 MG), QD
     Route: 055
     Dates: end: 20150331
  2. ALENIA                             /01538101/ [Concomitant]
     Active Substance: BUDESONIDE\FORMOTEROL FUMARATE
     Indication: PNEUMONIA
     Dosage: 1 DF (400), Q12H
     Route: 055

REACTIONS (4)
  - Apparent death [Unknown]
  - Off label use [Unknown]
  - Cardiomyopathy [Recovered/Resolved]
  - Cardiomegaly [Recovered/Resolved]

NARRATIVE: CASE EVENT DATE: 20150331
